FAERS Safety Report 4341697-4 (Version None)
Quarter: 2004Q2

REPORT INFORMATION
  Report Type: 
  Country: None (occurrence: None)
  Receive Date: 20040415
  Receipt Date: 20040331
  Transmission Date: 20050107
  Serious: Yes (Other)
  Sender: FDA-Public Use
  Company Number: US_0404102028

PATIENT
  Age: 69 Year
  Sex: Female

DRUGS (4)
  1. EVISTA [Suspect]
  2. FOSAMAX [Concomitant]
  3. ACTONEL [Concomitant]
  4. MICALCIN (CALCITONIN, SALMON) [Concomitant]

REACTIONS (6)
  - ABDOMINAL DISCOMFORT [None]
  - NAUSEA [None]
  - PATELLA FRACTURE [None]
  - UPPER LIMB FRACTURE [None]
  - VOMITING [None]
  - WRIST FRACTURE [None]
